FAERS Safety Report 8308729-X (Version None)
Quarter: 2012Q2

REPORT INFORMATION
  Report Type: 
  Country: None (occurrence: None)
  Receive Date: 20120420
  Receipt Date: 20120420
  Transmission Date: 20120825
  Serious: Yes (Other)
  Sender: FDA-Public Use
  Company Number: None

PATIENT
  Sex: Male
  Weight: 119.296 kg

DRUGS (1)
  1. CALAN [Suspect]
     Indication: HYPERTENSION
     Dosage: CALAN SR 240MG ONE BID ORAL
     Route: 048

REACTIONS (1)
  - HEADACHE [None]
